FAERS Safety Report 12841106 (Version 2)
Quarter: 2017Q2

REPORT INFORMATION
  Report Type: Spontaneous
  Country: US (occurrence: US)
  Receive Date: 20161012
  Receipt Date: 20170609
  Transmission Date: 20170830
  Serious: No
  Sender: FDA-Public Use
  Company Number: US-BRISTOL-MYERS SQUIBB COMPANY-BMS-2016-084331

PATIENT
  Age: 55 Year

DRUGS (1)
  1. ABILIFY [Suspect]
     Active Substance: ARIPIPRAZOLE
     Indication: MAJOR DEPRESSION
     Dosage: 15 MG, UNK
     Route: 065
     Dates: start: 2003, end: 201603

REACTIONS (5)
  - Prescribed overdose [Recovered/Resolved]
  - Gambling disorder [Recovered/Resolved]
  - Aggression [Recovered/Resolved]
  - Compulsive shopping [Recovered/Resolved]
  - Theft [Unknown]

NARRATIVE: CASE EVENT DATE: 201309
